FAERS Safety Report 20510963 (Version 1)
Quarter: 2022Q1

REPORT INFORMATION
  Report Type: Spontaneous
  Country: US (occurrence: US)
  Receive Date: 20220224
  Receipt Date: 20220224
  Transmission Date: 20220423
  Serious: Yes (Hospitalization)
  Sender: FDA-Public Use
  Company Number: US-SA-SAC20220222000736

PATIENT
  Age: 56 Year
  Sex: Female

DRUGS (16)
  1. DUPIXENT [Suspect]
     Active Substance: DUPILUMAB
     Dosage: 300 MG, QOW
     Route: 058
  2. ASPIRIN [Suspect]
     Active Substance: ASPIRIN
     Dosage: 81 MG
  3. ATORVASTATIN [Suspect]
     Active Substance: ATORVASTATIN
     Dosage: 80 MG
  4. BIOTIN [Suspect]
     Active Substance: BIOTIN
     Dosage: 300 UG
  5. BREO ELLIPTA [Suspect]
     Active Substance: FLUTICASONE FUROATE\VILANTEROL TRIFENATATE
     Dosage: 100-25MC
  6. BUPROPION HYDROCHLORIDE [Suspect]
     Active Substance: BUPROPION HYDROCHLORIDE
     Dosage: 100 MG
  7. DOXEPIN HCL [Suspect]
     Active Substance: DOXEPIN HYDROCHLORIDE
     Dosage: 150 MG
  8. FIBER [Suspect]
     Active Substance: PSYLLIUM HUSK
     Dosage: 625 MG
  9. FISH OIL [Suspect]
     Active Substance: FISH OIL
     Dosage: 1200 MG
  10. FLUTICASONE [Suspect]
     Active Substance: FLUTICASONE
     Dosage: 50 UG
  11. FUROSEMIDE [Suspect]
     Active Substance: FUROSEMIDE
     Dosage: 80 MG
  12. GABAPENTIN [Suspect]
     Active Substance: GABAPENTIN
  13. VITAMIN C [Suspect]
     Active Substance: ASCORBIC ACID
     Dosage: 1000MG
  14. VITAMIN D3 [Suspect]
     Active Substance: CHOLECALCIFEROL
     Dosage: 25 UG
  15. XOPENEX [Suspect]
     Active Substance: LEVALBUTEROL HYDROCHLORIDE
     Dosage: 1.25MG/3ML
  16. ZINC [Suspect]
     Active Substance: ZINC
     Dosage: 30MG

REACTIONS (3)
  - Joint hyperextension [Unknown]
  - Limb injury [Unknown]
  - Gait disturbance [Unknown]
